FAERS Safety Report 4987438-9 (Version None)
Quarter: 2006Q2

REPORT INFORMATION
  Report Type: 
  Country: None (occurrence: None)
  Receive Date: 20060427
  Receipt Date: 20060427
  Transmission Date: 20061013
  Serious: No
  Sender: FDA-Public Use
  Company Number: None

PATIENT
  Sex: Male

DRUGS (1)
  1. ABILIFY [Suspect]
     Indication: DEPRESSION
     Dosage: 30MG DAILY PO (TITRATION)
     Route: 048
     Dates: start: 20060404, end: 20060420

REACTIONS (1)
  - DYSTONIA [None]
